FAERS Safety Report 5403619-4 (Version None)
Quarter: 2007Q3

REPORT INFORMATION
  Report Type: 
  Country: None (occurrence: None)
  Receive Date: 20070802
  Receipt Date: 20070726
  Transmission Date: 20080115
  Serious: Yes (Hospitalization, Disabling)
  Sender: FDA-Public Use
  Company Number: PHNU2007DE02669

PATIENT

DRUGS (4)
  1. ZOMETA [Suspect]
     Indication: MULTIPLE MYELOMA
     Dosage: 4 MG, UNK
     Route: 042
     Dates: start: 20040101
  2. NEXIUM [Concomitant]
     Dosage: 1-0-0
     Route: 065
  3. ARTHROTEC FORTE [Concomitant]
     Dosage: 1-0-0
     Route: 065
  4. PROPRANOLOL [Concomitant]
     Dosage: 1-0-0
     Route: 065

REACTIONS (6)
  - BONE DISORDER [None]
  - IMPAIRED HEALING [None]
  - JAW DISORDER [None]
  - ORAL SURGERY [None]
  - OSTEONECROSIS [None]
  - TOOTH EXTRACTION [None]
